FAERS Safety Report 6072432-X (Version None)
Quarter: 2009Q1

REPORT INFORMATION
  Report Type: 
  Country: None (occurrence: None)
  Receive Date: 20090210
  Receipt Date: 20090205
  Transmission Date: 20090719
  Serious: Yes (Disabling)
  Sender: FDA-Public Use
  Company Number: CH-ABBOTT-09P-151-0502021-00

PATIENT
  Age: 60 Year
  Sex: Male

DRUGS (8)
  1. LUCRIN DEPOT [Suspect]
     Indication: PROSTATE CANCER
     Route: 030
     Dates: start: 20070101
  2. BICALUTAMIDE [Suspect]
     Indication: PROSTATE CANCER
     Route: 048
     Dates: start: 20081107
  3. BICALUTAMIDE [Suspect]
     Dates: start: 20050101, end: 20081029
  4. BICALUTAMIDE [Suspect]
     Dates: start: 20081030, end: 20081106
  5. BICALUTAMIDE [Suspect]
  6. BICALUTAMIDE [Suspect]
  7. SOLUTIO SACCH. D3 WELEDA (HOMEOPATHIC) [Concomitant]
     Indication: HYPERTENSION
     Dates: start: 20080601
  8. SELEN YEAST (BURGERSTEIN SELENVITAL) [Concomitant]
     Indication: DRUG USE FOR UNKNOWN INDICATION
     Dates: start: 20050101

REACTIONS (1)
  - TINNITUS [None]
